FAERS Safety Report 14246682 (Version 27)
Quarter: 2020Q2

REPORT INFORMATION
  Report Type: Spontaneous
  Country: US (occurrence: US)
  Receive Date: 20171204
  Receipt Date: 20200514
  Transmission Date: 20200713
  Serious: Yes (Other)
  Sender: FDA-Public Use
  Company Number: US-PFIZER INC-2017512614

PATIENT
  Age: 64 Year
  Sex: Female

DRUGS (5)
  1. GENOTROPIN MQ [Suspect]
     Active Substance: SOMATROPIN
     Dosage: 0.6 MG, DAILY, [7 DAYS A WEEK]
     Route: 058
  2. GENOTROPIN MQ [Suspect]
     Active Substance: SOMATROPIN
     Dosage: 0.6 MG, DAILY
     Route: 058
     Dates: start: 20170216
  3. GENOTROPIN MQ [Suspect]
     Active Substance: SOMATROPIN
     Dosage: 0.4 MG, UNK
     Route: 058
  4. GENOTROPIN MQ [Suspect]
     Active Substance: SOMATROPIN
     Dosage: 0.6 MG, DAILY
     Route: 058
     Dates: start: 201703
  5. GENOTROPIN MQ [Suspect]
     Active Substance: SOMATROPIN
     Dosage: 0.8 MG, DAILY
     Route: 058

REACTIONS (36)
  - Suicidal ideation [Unknown]
  - Brain neoplasm [Unknown]
  - Craniopharyngioma [Unknown]
  - Amnesia [Unknown]
  - Insomnia [Unknown]
  - Vertigo [Not Recovered/Not Resolved]
  - Product dose omission [Unknown]
  - Blood thyroid stimulating hormone increased [Unknown]
  - Anger [Unknown]
  - Crying [Unknown]
  - Tri-iodothyronine free decreased [Unknown]
  - Hypopituitarism [Unknown]
  - Optic nerve neoplasm [Unknown]
  - Asthenia [Unknown]
  - Agitation [Unknown]
  - Feeling abnormal [Unknown]
  - Impaired driving ability [Unknown]
  - Fatigue [Unknown]
  - Narcolepsy [Unknown]
  - Ankle fracture [Not Recovered/Not Resolved]
  - Hallucination [Unknown]
  - Dizziness [Not Recovered/Not Resolved]
  - Meningioma [Unknown]
  - Fall [Unknown]
  - Glycosylated haemoglobin increased [Unknown]
  - Memory impairment [Unknown]
  - Hypothalamo-pituitary disorder [Unknown]
  - Blood glucose increased [Unknown]
  - Neutrophil count increased [Unknown]
  - Lymphocyte count decreased [Unknown]
  - Depression [Unknown]
  - Impaired healing [Not Recovered/Not Resolved]
  - Malaise [Unknown]
  - Thyroxine free decreased [Unknown]
  - Blood thyroid stimulating hormone decreased [Unknown]
  - Neoplasm progression [Unknown]

NARRATIVE: CASE EVENT DATE: 20170213
